FAERS Safety Report 20586996 (Version 9)
Quarter: 2023Q1

REPORT INFORMATION
  Report Type: Report from Study
  Country: JP (occurrence: JP)
  Receive Date: 20220314
  Receipt Date: 20230120
  Transmission Date: 20230418
  Serious: Yes (Hospitalization)
  Sender: FDA-Public Use
  Company Number: JP-ABBVIE-20K-087-3305026-00

PATIENT
  Age: 61 Year
  Sex: Female
  Weight: 36 kg

DRUGS (5)
  1. CARBIDOPA\LEVODOPA [Suspect]
     Active Substance: CARBIDOPA\LEVODOPA
     Indication: Parkinson^s disease
     Dosage: MD: 15 ML?CD: 4.6 ML/HR ? 16 HRS?ED: 1.7 ML/UNIT ? 3
     Route: 050
     Dates: start: 20170615
  2. CARBIDOPA\LEVODOPA [Suspect]
     Active Substance: CARBIDOPA\LEVODOPA
     Dosage: MD: 20 ML?CD: 4.5 ML/HR ? 16 HRS?ED: 1.7 ML/UNIT ? 3
     Route: 050
  3. CARBIDOPA\LEVODOPA [Suspect]
     Active Substance: CARBIDOPA\LEVODOPA
     Dosage: MD: 15 ML, CD: 4.5 ML/HR 16 HRS, ED: 1.6 ML/UNIT A-3
     Route: 050
  4. SINEMET [Concomitant]
     Active Substance: CARBIDOPA\LEVODOPA
     Indication: Parkinson^s disease
     Route: 048
  5. ROTIGOTINE [Concomitant]
     Active Substance: ROTIGOTINE
     Indication: Parkinson^s disease
     Dosage: 6.75 MILLIGRAM
     Route: 062

REACTIONS (11)
  - Altered state of consciousness [Unknown]
  - Back pain [Not Recovered/Not Resolved]
  - Hospitalisation [Unknown]
  - Overdose [Unknown]
  - Feeling hot [Recovering/Resolving]
  - Tremor [Not Recovered/Not Resolved]
  - Malaise [Not Recovered/Not Resolved]
  - Hypokinesia [Not Recovered/Not Resolved]
  - Abdominal pain [Recovering/Resolving]
  - Therapeutic response shortened [Not Recovered/Not Resolved]
  - Dizziness [Recovering/Resolving]

NARRATIVE: CASE EVENT DATE: 20170630
